FAERS Safety Report 9936652 (Version 1)
Quarter: 2014Q1

REPORT INFORMATION
  Report Type: Report from Study
  Country: CO (occurrence: CO)
  Receive Date: 20140228
  Receipt Date: 20140228
  Transmission Date: 20141002
  Serious: Yes (Death)
  Sender: FDA-Public Use
  Company Number: CO-ASTRAZENECA-2014SE13583

PATIENT
  Age: 20947 Day
  Sex: Female

DRUGS (4)
  1. BRILINTA [Suspect]
     Indication: INFARCTION
     Route: 048
     Dates: start: 20140217, end: 20140222
  2. ASA [Concomitant]
  3. ENALAPRIL [Concomitant]
  4. ATORVASTATIN [Concomitant]

REACTIONS (1)
  - Acute myocardial infarction [Fatal]
